FAERS Safety Report 7351116-1 (Version None)
Quarter: 2011Q1

REPORT INFORMATION
  Report Type: 
  Country: None (occurrence: None)
  Receive Date: 20110314
  Receipt Date: 20110303
  Transmission Date: 20110831
  Serious: Yes (Other)
  Sender: FDA-Public Use
  Company Number: GB-JNJFOC-20110302465

PATIENT
  Age: 50 Year
  Sex: Male

DRUGS (1)
  1. REMICADE [Suspect]
     Indication: PRODUCT USED FOR UNKNOWN INDICATION
     Route: 042

REACTIONS (10)
  - HYPERTENSION [None]
  - NAUSEA [None]
  - DIZZINESS [None]
  - PALPITATIONS [None]
  - VOMITING [None]
  - FLUSHING [None]
  - ADVERSE EVENT [None]
  - CHEST DISCOMFORT [None]
  - INFUSION RELATED REACTION [None]
  - TACHYCARDIA [None]
